FAERS Safety Report 8762708 (Version 4)
Quarter: 2012Q4

REPORT INFORMATION
  Report Type: 
  Country: US (occurrence: US)
  Receive Date: 20120830
  Receipt Date: 20120927
  Transmission Date: 20130627
  Serious: Yes (Other)
  Sender: FDA-Public Use
  Company Number: US-AMGEN-USASP2012054432

PATIENT
  Age: 58 Year
  Sex: Male

DRUGS (2)
  1. XGEVA [Suspect]
     Indication: PROSTATE CANCER STAGE IV
     Dosage: 120 mg, q4wk
     Route: 058
     Dates: start: 20120127, end: 20120720
  2. PERCOLONE [Concomitant]

REACTIONS (3)
  - Pain in jaw [Not Recovered/Not Resolved]
  - Osteonecrosis of jaw [Not Recovered/Not Resolved]
  - Metastases to spine [Unknown]
